FAERS Safety Report 5634425-3 (Version None)
Quarter: 2008Q1

REPORT INFORMATION
  Report Type: 
  Country: None (occurrence: None)
  Receive Date: 20080131
  Receipt Date: 20070306
  Transmission Date: 20080703
  Serious: Yes (Other)
  Sender: FDA-Public Use
  Company Number: 149847USA

PATIENT
  Age: 41 Year
  Sex: Male

DRUGS (3)
  1. COPAXONE [Suspect]
     Indication: MULTIPLE SCLEROSIS
     Dosage: 20 MG (20 MG,1 IN 1 D), SUBCUTANEOUS
     Route: 058
     Dates: start: 19960101
  2. PREDNISONE [Concomitant]
  3. EZETIMIBE [Concomitant]

REACTIONS (1)
  - HEPATITIS TOXIC [None]
